FAERS Safety Report 5237386-4 (Version None)
Quarter: 2007Q1

REPORT INFORMATION
  Report Type: 
  Country: None (occurrence: None)
  Receive Date: 20070213
  Receipt Date: 20070129
  Transmission Date: 20070707
  Serious: Yes (Other)
  Sender: FDA-Public Use
  Company Number: US-SHR-US-2007-001114

PATIENT
  Age: 65 Year
  Sex: Male
  Weight: 88.435 kg

DRUGS (8)
  1. BETASERON [Suspect]
     Indication: MULTIPLE SCLEROSIS
     Dosage: 8 MIU, EVERY 2D
     Route: 058
     Dates: start: 20061001
  2. PREGABALIN [Suspect]
     Dosage: UNK, UNK
     Dates: start: 20061201
  3. DIGOXIN [Concomitant]
     Dosage: .25 MG, 1X/DAY
  4. TRAVASTIN [Concomitant]
     Dosage: 40 MG, UNK
  5. METOPROLOL TARTRATE [Concomitant]
     Dosage: 50 MG, UNK
     Route: 048
     Dates: start: 20020101
  6. ENALAPRIL MALEATE [Concomitant]
     Dosage: 25 MG, UNK
     Route: 048
     Dates: start: 20020101
  7. CARDIZEM [Concomitant]
     Dosage: 240 MG, UNK
     Route: 048
     Dates: start: 20020101
  8. KLOR-CON [Concomitant]
     Dosage: 20 MG, UNK
     Route: 048
     Dates: start: 20020101

REACTIONS (2)
  - ATRIAL FIBRILLATION [None]
  - PALPITATIONS [None]
